FAERS Safety Report 11526725 (Version 1)
Quarter: 2015Q3

REPORT INFORMATION
  Report Type: Spontaneous
  Country: US (occurrence: US)
  Receive Date: 20150903
  Receipt Date: 20150903
  Transmission Date: 20151125
  Serious: No
  Sender: FDA-Public Use
  Company Number: US-ELI_LILLY_AND_COMPANY-US201405003984

PATIENT
  Age: 55 Year
  Sex: Male

DRUGS (1)
  1. DULOXETINE HYDROCHLORIDE. [Suspect]
     Active Substance: DULOXETINE HYDROCHLORIDE
     Indication: ANXIETY
     Dosage: 20 MG, UNKNOWN
     Route: 065
     Dates: start: 2005

REACTIONS (8)
  - Weight decreased [Unknown]
  - Intentional product misuse [Unknown]
  - Paraesthesia [Unknown]
  - Dizziness [Unknown]
  - Weight loss poor [Unknown]
  - Drug withdrawal syndrome [Unknown]
  - Feeling hot [Unknown]
  - Headache [Unknown]

NARRATIVE: CASE EVENT DATE: 201405
